FAERS Safety Report 5879623-9 (Version None)
Quarter: 2008Q3

REPORT INFORMATION
  Report Type: 
  Country: None (occurrence: None)
  Receive Date: 20080912
  Receipt Date: 20080908
  Transmission Date: 20090109
  Serious: Yes (Hospitalization)
  Sender: FDA-Public Use
  Company Number: NO-ASTRAZENECA-2008SE04242

PATIENT
  Age: 80 Year
  Sex: Female

DRUGS (13)
  1. SEROQUEL [Suspect]
     Indication: PSYCHOTIC DISORDER
     Route: 048
     Dates: start: 20080314, end: 20080325
  2. SEROQUEL [Interacting]
     Route: 048
     Dates: start: 20080326, end: 20080401
  3. SEROQUEL [Interacting]
     Route: 048
     Dates: start: 20080402, end: 20080403
  4. SEROQUEL [Interacting]
     Route: 048
     Dates: start: 20080404, end: 20080406
  5. SEROQUEL [Interacting]
     Route: 048
     Dates: start: 20080407, end: 20080413
  6. SEROQUEL [Interacting]
     Dosage: 50 MG + 75 MG
     Route: 048
     Dates: start: 20080414, end: 20080416
  7. SEROQUEL [Interacting]
     Route: 048
     Dates: start: 20080417, end: 20080419
  8. SEROQUEL [Interacting]
     Dosage: 75 MG + 100 MG
     Route: 048
     Dates: start: 20080420, end: 20080423
  9. SEROQUEL [Interacting]
     Route: 048
     Dates: start: 20080424
  10. CITALOPRAM HYDROBROMIDE [Interacting]
     Indication: DEPRESSION
     Route: 048
     Dates: start: 20080311, end: 20080507
  11. DIOVAN COMP [Concomitant]
     Dosage: 160/25 MG
     Route: 048
     Dates: end: 20080407
  12. SIMVASTATIN [Concomitant]
     Route: 048
  13. ACETAMINOPHEN [Concomitant]
     Route: 048

REACTIONS (2)
  - DRUG INTERACTION [None]
  - URINARY RETENTION [None]
